FAERS Safety Report 10482536 (Version 3)
Quarter: 2015Q2

REPORT INFORMATION
  Report Type: Spontaneous
  Country: NL (occurrence: NL)
  Receive Date: 20140929
  Receipt Date: 20150615
  Transmission Date: 20150821
  Serious: Yes (Death, Hospitalization, Other)
  Sender: FDA-Public Use
  Company Number: NL-PFIZER INC-2014262445

PATIENT
  Age: 77 Year
  Sex: Male

DRUGS (8)
  1. CEFTRIAXONE. [Suspect]
     Active Substance: CEFTRIAXONE
     Dosage: 2 G, 2X/DAY
     Route: 042
  2. CLARITHROMYCIN. [Suspect]
     Active Substance: CLARITHROMYCIN
     Indication: HEADACHE
  3. PENICILLIN [Suspect]
     Active Substance: PENICILLIN
     Dosage: 12 MILLIONIU, DAILY
     Route: 042
  4. METRONIDAZOLE. [Suspect]
     Active Substance: METRONIDAZOLE
     Indication: BACTERIAL INFECTION
     Dosage: 500 MG, 3X/DAY
     Route: 042
  5. AMOXICILLIN. [Suspect]
     Active Substance: AMOXICILLIN
     Dosage: 2 G, SIX TIMES DAILY
     Route: 042
  6. CLARITHROMYCIN. [Suspect]
     Active Substance: CLARITHROMYCIN
     Indication: CONFUSIONAL STATE
     Dosage: 250 MG, 2X/DAY
     Route: 048
  7. VANCOMYCIN HCL [Suspect]
     Active Substance: VANCOMYCIN HYDROCHLORIDE
     Dosage: UNK
     Route: 042
  8. CEFTRIAXONE. [Suspect]
     Active Substance: CEFTRIAXONE
     Dosage: UNK

REACTIONS (2)
  - Drug reaction with eosinophilia and systemic symptoms [Fatal]
  - Acute kidney injury [Fatal]
